FAERS Safety Report 6879688-1 (Version None)
Quarter: 2010Q3

REPORT INFORMATION
  Report Type: 
  Country: None (occurrence: None)
  Receive Date: 20100728
  Receipt Date: 20100715
  Transmission Date: 20110219
  Serious: Yes (Hospitalization, Other)
  Sender: FDA-Public Use
  Company Number: US-ELI_LILLY_AND_COMPANY-US201003004527

PATIENT
  Sex: Female

DRUGS (10)
  1. FORTEO [Suspect]
     Indication: OSTEOPOROSIS
     Dosage: 20 UG, DAILY (1/D)
     Dates: start: 20091101, end: 20100420
  2. DIOVAN [Concomitant]
     Dosage: 5 MG, UNKNOWN
  3. PREDNISONE [Concomitant]
     Dosage: 10 MG, UNKNOWN
  4. ASPIRIN [Concomitant]
     Dosage: 81 MG, UNKNOWN
  5. SPIRIVA [Concomitant]
     Dosage: UNK, DAILY (1/D)
  6. XOPENEX [Concomitant]
     Dosage: UNK, AS NEEDED
     Route: 055
  7. VITAMIN TAB [Concomitant]
  8. NEXIUM [Concomitant]
     Dosage: 40 MG, UNKNOWN
  9. ADVAIR DISKUS 100/50 [Concomitant]
     Dosage: UNK D/F, 2/D
     Route: 055
  10. GAMMAGLOBULIN /00025201/ [Concomitant]
     Dosage: UNK, OTHER
     Route: 042

REACTIONS (6)
  - BACTERIAL TEST POSITIVE [None]
  - BENIGN LUNG NEOPLASM [None]
  - DIVERTICULITIS [None]
  - DYSPNOEA [None]
  - FATIGUE [None]
  - PAIN [None]
